FAERS Safety Report 5945241-7 (Version None)
Quarter: 2008Q4

REPORT INFORMATION
  Report Type: 
  Country: None (occurrence: None)
  Receive Date: 20081107
  Receipt Date: 20081031
  Transmission Date: 20090506
  Serious: Yes (Hospitalization)
  Sender: FDA-Public Use
  Company Number: IT-JNJFOC-20081007401

PATIENT

DRUGS (1)
  1. RISPERIDONE [Suspect]
     Indication: SCHIZOPHRENIA
     Route: 065

REACTIONS (1)
  - DELUSION [None]
